FAERS Safety Report 6152810-0 (Version None)
Quarter: 2009Q2

REPORT INFORMATION
  Report Type: 
  Country: None (occurrence: None)
  Receive Date: 20090413
  Receipt Date: 20090401
  Transmission Date: 20091009
  Serious: Yes (Hospitalization, Other)
  Sender: FDA-Public Use
  Company Number: JP-PFIZER INC-2009193206

PATIENT

DRUGS (1)
  1. GABAPEN [Suspect]
     Indication: ANALGESIA
     Dosage: 1 TABLET
     Dates: start: 20090330, end: 20090330

REACTIONS (2)
  - ALTERED STATE OF CONSCIOUSNESS [None]
  - SPEECH DISORDER [None]
